FAERS Safety Report 5627113-0 (Version None)
Quarter: 2008Q1

REPORT INFORMATION
  Report Type: 
  Country: None (occurrence: None)
  Receive Date: 20080215
  Receipt Date: 20080213
  Transmission Date: 20080703
  Serious: Yes (Other)
  Sender: FDA-Public Use
  Company Number: US-RB-009319-08

PATIENT
  Age: 30 Year
  Sex: Male

DRUGS (2)
  1. SUBOXONE [Suspect]
     Route: 060
  2. ANAFRANIL [Suspect]
     Indication: OBSESSIVE-COMPULSIVE DISORDER
     Dosage: UNKNOWN DOSAGE
     Route: 048

REACTIONS (1)
  - PSYCHOTIC DISORDER [None]
